FAERS Safety Report 4503452-1 (Version None)
Quarter: 2004Q4

REPORT INFORMATION
  Report Type: 
  Country: None (occurrence: None)
  Receive Date: 20041112
  Receipt Date: 20041101
  Transmission Date: 20050328
  Serious: Yes (Other)
  Sender: FDA-Public Use
  Company Number: 2004086559

PATIENT
  Sex: Female

DRUGS (5)
  1. ROGAINE [Suspect]
     Indication: ALOPECIA
     Dosage: 1ML BID, TOPICAL
     Route: 061
     Dates: start: 19800101, end: 20000101
  2. METFORMIN HCL [Concomitant]
  3. CONJUGATED ESTROGENS [Concomitant]
  4. GLIPIZIDE [Concomitant]
  5. SPIRONOLACTONE [Concomitant]

REACTIONS (1)
  - GALLBLADDER OPERATION [None]
